FAERS Safety Report 21092921 (Version 2)
Quarter: 2022Q3

REPORT INFORMATION
  Report Type: Spontaneous
  Country: CN (occurrence: CN)
  Receive Date: 20220718
  Receipt Date: 20220726
  Transmission Date: 20221026
  Serious: Yes (Life-Threatening, Other)
  Sender: FDA-Public Use
  Company Number: CN-SA-SAC20220715000228

PATIENT
  Age: 59 Year
  Sex: Male
  Weight: 50 kg

DRUGS (3)
  1. ELOXATIN [Suspect]
     Active Substance: OXALIPLATIN
     Indication: Chemotherapy
     Dosage: 130 MG, QD
     Route: 041
     Dates: start: 20220616, end: 20220616
  2. FLUOROURACIL [Suspect]
     Active Substance: FLUOROURACIL
     Indication: Chemotherapy
     Dosage: 3.75 G, QD
     Dates: start: 20220616, end: 20220616
  3. LEUCOVORIN SODIUM [Concomitant]
     Active Substance: LEUCOVORIN SODIUM
     Indication: Chemotherapy
     Dosage: 0.30 G, QD
     Route: 041
     Dates: start: 20220616, end: 20220617

REACTIONS (1)
  - Toxic leukoencephalopathy [Recovering/Resolving]

NARRATIVE: CASE EVENT DATE: 20220619
